FAERS Safety Report 4352593-0 (Version None)
Quarter: 2004Q2

REPORT INFORMATION
  Report Type: 
  Country: None (occurrence: None)
  Receive Date: 20040420
  Receipt Date: 20040301
  Transmission Date: 20050107
  Serious: No
  Sender: FDA-Public Use
  Company Number: 2004201498US

PATIENT
  Sex: Female

DRUGS (1)
  1. INSPRA [Suspect]
     Dosage: 25 MG, QD
     Dates: start: 20040101

REACTIONS (2)
  - ASTHENIA [None]
  - MYALGIA [None]
